FAERS Safety Report 9464050 (Version 2)
Quarter: 2013Q4

REPORT INFORMATION
  Report Type: Spontaneous
  Country: GB (occurrence: GB)
  Receive Date: 20130819
  Receipt Date: 20131128
  Transmission Date: 20140711
  Serious: Yes (Other)
  Sender: FDA-Public Use
  Company Number: GB-009507513-1307GBR016279

PATIENT
  Sex: Female

DRUGS (1)
  1. NEXPLANON [Suspect]
     Dosage: 1 DF, UNK
     Route: 059
     Dates: start: 201107

REACTIONS (7)
  - Ovarian cystectomy [Unknown]
  - Haemorrhage [Unknown]
  - Dizziness [Unknown]
  - Ovarian cyst [Recovered/Resolved]
  - Amenorrhoea [Recovered/Resolved]
  - Drug ineffective [Unknown]
  - Overweight [Unknown]
